FAERS Safety Report 4699838-5 (Version None)
Quarter: 2005Q2

REPORT INFORMATION
  Report Type: 
  Country: None (occurrence: None)
  Receive Date: 20050624
  Receipt Date: 20050509
  Transmission Date: 20051028
  Serious: Yes (Hospitalization, Disabling, Other)
  Sender: FDA-Public Use
  Company Number: US-MERCK-0505USA01091

PATIENT
  Age: 53 Year
  Sex: Female
  Weight: 55 kg

DRUGS (11)
  1. FOSAMAX [Suspect]
     Route: 048
     Dates: start: 20030101, end: 20050101
  2. VITAMINS (UNSPECIFIED) [Concomitant]
     Route: 065
  3. THYROXIN [Concomitant]
     Route: 065
  4. LISINOPRIL [Concomitant]
     Route: 048
  5. TOPROL-XL [Concomitant]
     Route: 065
  6. LASIX [Concomitant]
     Route: 065
  7. ALLOPURINOL [Concomitant]
     Route: 065
  8. ALLEGRA [Concomitant]
     Route: 065
  9. GLIPIZIDE [Concomitant]
     Route: 065
  10. PREVACID [Concomitant]
     Route: 065
  11. COUMADIN [Concomitant]
     Route: 065

REACTIONS (2)
  - MYELODYSPLASTIC SYNDROME [None]
  - OSTEONECROSIS [None]
